FAERS Safety Report 7315288-7 (Version None)
Quarter: 2011Q1

REPORT INFORMATION
  Report Type: 
  Country: None (occurrence: None)
  Receive Date: 20110218
  Receipt Date: 20110218
  Transmission Date: 20110831
  Serious: Yes (Life-Threatening, Hospitalization, Disabling, Other)
  Sender: FDA-Public Use
  Company Number: None

PATIENT
  Age: 23 Year
  Sex: Female
  Weight: 51.9369 kg

DRUGS (2)
  1. HYDROCODONE BITARTRATE + ACETAMINOPHEN [Suspect]
     Indication: INTERVERTEBRAL DISC PROTRUSION
     Dosage: 1 EVERY 4-6 HRS FOR PAIN 4-6 TABLETS DAILY PO
     Route: 048
     Dates: start: 20110205, end: 20110207
  2. HYDROCODONE BITARTRATE + ACETAMINOPHEN [Suspect]
     Indication: PAIN MANAGEMENT
     Dosage: 1 EVERY 4-6 HRS FOR PAIN 4-6 TABLETS DAILY PO
     Route: 048
     Dates: start: 20110205, end: 20110207

REACTIONS (16)
  - MOOD ALTERED [None]
  - NAUSEA [None]
  - DYSARTHRIA [None]
  - DELUSION [None]
  - AGGRESSION [None]
  - DYSPEPSIA [None]
  - CONSTIPATION [None]
  - CRYING [None]
  - GAIT DISTURBANCE [None]
  - HYPOAESTHESIA [None]
  - VOMITING [None]
  - INAPPROPRIATE AFFECT [None]
  - ABNORMAL BEHAVIOUR [None]
  - MEMORY IMPAIRMENT [None]
  - REPETITIVE SPEECH [None]
  - TEMPERATURE INTOLERANCE [None]
